FAERS Safety Report 24885233 (Version 1)
Quarter: 2025Q1

REPORT INFORMATION
  Report Type: Spontaneous
  Country: CA (occurrence: CA)
  Receive Date: 20250124
  Receipt Date: 20250124
  Transmission Date: 20250408
  Serious: Yes (Disabling)
  Sender: MYLAN
  Company Number: CA-MYLANLABS-2025M1006521

PATIENT
  Age: 34 Year
  Sex: Male

DRUGS (1)
  1. EFFEXOR XR [Suspect]
     Active Substance: VENLAFAXINE HYDROCHLORIDE
     Indication: Depression
     Dosage: UNK, QD (1 EVERY 1 DAYS)
     Route: 048

REACTIONS (11)
  - Anxiety [Unknown]
  - Brain fog [Unknown]
  - Depression [Unknown]
  - Disturbance in attention [Unknown]
  - Irritability [Unknown]
  - Memory impairment [Unknown]
  - Quality of life decreased [Unknown]
  - Disturbance in sexual arousal [Unknown]
  - Libido decreased [Unknown]
  - Anorgasmia [Unknown]
  - Sexual dysfunction [Unknown]
